FAERS Safety Report 14145783 (Version 2)
Quarter: 2017Q4

REPORT INFORMATION
  Report Type: Spontaneous
  Country: US (occurrence: US)
  Receive Date: 20171031
  Receipt Date: 20171116
  Transmission Date: 20180321
  Serious: Yes (Life-Threatening, Hospitalization, Disabling, Other)
  Sender: FDA-Public Use
  Company Number: US-009507513-1710USA016059

PATIENT
  Age: 74 Year
  Sex: Female
  Weight: 87.53 kg

DRUGS (5)
  1. HYDROCHLOROTHIAZIDE (+) LOSARTAN POTASSIUM [Concomitant]
     Active Substance: HYDROCHLOROTHIAZIDE\LOSARTAN POTASSIUM
  2. FENOFIBRATE. [Concomitant]
     Active Substance: FENOFIBRATE
  3. INSULIN [Concomitant]
     Active Substance: INSULIN NOS
  4. ASPIRIN. [Concomitant]
     Active Substance: ASPIRIN
  5. JANUVIA [Suspect]
     Active Substance: SITAGLIPTIN PHOSPHATE
     Indication: TYPE 2 DIABETES MELLITUS
     Dosage: 100 MG, QD
     Route: 048
     Dates: start: 20170110, end: 20170415

REACTIONS (1)
  - Pancreatitis acute [Not Recovered/Not Resolved]
